FAERS Safety Report 14756379 (Version 2)
Quarter: 2018Q2

REPORT INFORMATION
  Report Type: Spontaneous
  Country: DE (occurrence: DE)
  Receive Date: 20180413
  Receipt Date: 20180510
  Transmission Date: 20180711
  Serious: Yes (Death, Hospitalization, Other)
  Sender: FDA-Public Use
  Company Number: DE-AUROBINDO-AUR-APL-2018-019729

PATIENT
  Age: 56 Year
  Sex: Male

DRUGS (11)
  1. BLEOMYCIN [Suspect]
     Active Substance: BLEOMYCIN SULFATE
     Indication: TESTICULAR GERM CELL CANCER METASTATIC
     Dosage: CYCLIC () ; CYCLICAL
  2. ETOPOSIDE. [Suspect]
     Active Substance: ETOPOSIDE
     Indication: SEMINOMA
     Dosage: CYCLIC () ; CYCLICAL
     Route: 065
  3. BLEOMYCIN [Suspect]
     Active Substance: BLEOMYCIN SULFATE
     Indication: SEMINOMA
     Dosage: ()
     Route: 065
  4. ACETYLSALICYLIC ACID [Suspect]
     Active Substance: ASPIRIN
     Indication: ANTIPLATELET THERAPY
     Dosage: ()
     Route: 065
  5. CLOPIDOGREL [Suspect]
     Active Substance: CLOPIDOGREL BISULFATE
     Indication: ANTIPLATELET THERAPY
     Dosage: ()
     Route: 065
  6. ETOPOSIDE. [Suspect]
     Active Substance: ETOPOSIDE
     Indication: TESTICULAR GERM CELL CANCER METASTATIC
     Dosage: 2 DOSES WITH 100 MG/M2, 1 DOSE WITH 50 MG/M2 () ; CYCLICAL
     Route: 042
     Dates: start: 20120416, end: 20120428
  7. CISPLATIN. [Suspect]
     Active Substance: CISPLATIN
     Indication: METASTASIS
     Dosage: CYCLIC () ; CYCLICAL
     Route: 065
  8. CISPLATIN. [Suspect]
     Active Substance: CISPLATIN
     Indication: SEMINOMA
     Dosage: CYCLIC ()
     Route: 065
  9. CISPLATIN. [Suspect]
     Active Substance: CISPLATIN
     Indication: TESTICULAR GERM CELL CANCER METASTATIC
     Dosage: 2 DOSES WITH 20 MG/M2, 1 DOSE WITH 10 MG/M2 ()
     Route: 042
     Dates: start: 20120416, end: 20120428
  10. CISPLATIN. [Suspect]
     Active Substance: CISPLATIN
     Dosage: UNK, CYCLIC ()
     Route: 065
  11. BLEOMYCIN [Suspect]
     Active Substance: BLEOMYCIN SULFATE
     Dosage: CYCLIC ()
     Route: 065

REACTIONS (13)
  - Cerebral artery occlusion [Fatal]
  - Subdural haemorrhage [Unknown]
  - Facial paralysis [Unknown]
  - Ischaemic cerebral infarction [Fatal]
  - Dysarthria [Unknown]
  - Cerebral microhaemorrhage [Not Recovered/Not Resolved]
  - Cerebral artery stenosis [Fatal]
  - Cerebral infarction [Unknown]
  - Brain oedema [Fatal]
  - Arterial occlusive disease [Fatal]
  - Thrombocytopenia [Unknown]
  - Hemiplegia [Unknown]
  - Hemiparesis [Unknown]

NARRATIVE: CASE EVENT DATE: 20120414
